FAERS Safety Report 16367345 (Version 4)
Quarter: 2019Q3

REPORT INFORMATION
  Report Type: Spontaneous
  Country: US (occurrence: US)
  Receive Date: 20190529
  Receipt Date: 20190910
  Transmission Date: 20191004
  Serious: Yes (Other)
  Sender: FDA-Public Use
  Company Number: US-PFIZER INC-2019215161

PATIENT
  Age: 63 Year
  Sex: Female

DRUGS (1)
  1. LYRICA [Suspect]
     Active Substance: PREGABALIN
     Indication: FIBROMYALGIA
     Dosage: UNK

REACTIONS (13)
  - Arthropathy [Unknown]
  - Physical deconditioning [Unknown]
  - Intracranial aneurysm [Unknown]
  - Fall [Unknown]
  - Intentional product use issue [Unknown]
  - Blood pressure decreased [Unknown]
  - Malaise [Unknown]
  - Limb injury [Unknown]
  - Pain [Unknown]
  - Enuresis [Unknown]
  - Facial bones fracture [Unknown]
  - Concussion [Unknown]
  - Vomiting [Unknown]
